FAERS Safety Report 5323799-9 (Version None)
Quarter: 2007Q2

REPORT INFORMATION
  Report Type: 
  Country: None (occurrence: None)
  Receive Date: 20070514
  Receipt Date: 20070511
  Transmission Date: 20071010
  Serious: Yes (Hospitalization)
  Sender: FDA-Public Use
  Company Number: A0650647A

PATIENT
  Age: 7 Month
  Sex: Female
  Weight: 4.8 kg

DRUGS (1)
  1. RANITIDINE [Suspect]
     Dosage: 37.5MG TWICE PER DAY
     Route: 065
     Dates: start: 20070401

REACTIONS (4)
  - CONVULSION [None]
  - FONTANELLE BULGING [None]
  - MEDICATION ERROR [None]
  - OVERDOSE [None]
